FAERS Safety Report 19623403 (Version 2)
Quarter: 2022Q3

REPORT INFORMATION
  Report Type: Report from Study
  Country: CA (occurrence: CA)
  Receive Date: 20210729
  Receipt Date: 20220811
  Transmission Date: 20221027
  Serious: Yes (Other)
  Sender: FDA-Public Use
  Company Number: CA-NOVARTISPH-PHHY2016CA034877

PATIENT
  Age: 32 Year
  Sex: Female

DRUGS (1)
  1. GILENYA [Suspect]
     Active Substance: FINGOLIMOD HYDROCHLORIDE
     Indication: Relapsing-remitting multiple sclerosis
     Dosage: UNK
     Route: 048
     Dates: start: 20160311

REACTIONS (9)
  - Expanded disability status scale score increased [Unknown]
  - Insomnia [Unknown]
  - Erythema [Unknown]
  - Pollakiuria [Unknown]
  - Thirst [Unknown]
  - Dehydration [Unknown]
  - Dry skin [Unknown]
  - Rhinorrhoea [Unknown]
  - Fatigue [Unknown]

NARRATIVE: CASE EVENT DATE: 20160311
